FAERS Safety Report 8575152-2 (Version None)
Quarter: 2012Q3

REPORT INFORMATION
  Report Type: 
  Country: None (occurrence: None)
  Receive Date: 20120807
  Receipt Date: 20120801
  Transmission Date: 20120928
  Serious: Yes (Other)
  Sender: FDA-Public Use
  Company Number: US-PFIZER INC-2012187833

PATIENT

DRUGS (2)
  1. PREMARIN [Suspect]
     Dosage: UNK
  2. PROTONIX [Suspect]
     Dosage: UNK

REACTIONS (6)
  - BURSITIS [None]
  - ROAD TRAFFIC ACCIDENT [None]
  - SURGERY [None]
  - ARTHRITIS [None]
  - NECK INJURY [None]
  - BONE DISORDER [None]
